FAERS Safety Report 25137457 (Version 1)
Quarter: 2025Q1

REPORT INFORMATION
  Report Type: Report from Study
  Country: US (occurrence: US)
  Receive Date: 20250329
  Receipt Date: 20250329
  Transmission Date: 20250409
  Serious: Yes (Hospitalization)
  Sender: ABBVIE
  Company Number: US-ABBVIE-6108436

PATIENT
  Age: 61 Year
  Sex: Female

DRUGS (2)
  1. IMBRUVICA [Suspect]
     Active Substance: IBRUTINIB
     Indication: Waldenstrom^s macroglobulinaemia
     Route: 048
     Dates: start: 20210404, end: 20250110
  2. IMBRUVICA [Suspect]
     Active Substance: IBRUTINIB
     Indication: Waldenstrom^s macroglobulinaemia
     Route: 048
     Dates: start: 2025

REACTIONS (9)
  - Malaise [Unknown]
  - Pain [Unknown]
  - Dizziness [Unknown]
  - Dysstasia [Unknown]
  - Fall [Unknown]
  - Ankle fracture [Unknown]
  - Diabetic ketoacidosis [Unknown]
  - Clostridium difficile infection [Unknown]
  - Hypotension [Unknown]

NARRATIVE: CASE EVENT DATE: 20250110
